FAERS Safety Report 5481794-3 (Version None)
Quarter: 2007Q4

REPORT INFORMATION
  Report Type: 
  Country: None (occurrence: None)
  Receive Date: 20071004
  Receipt Date: 20070924
  Transmission Date: 20080405
  Serious: Yes (Hospitalization)
  Sender: FDA-Public Use
  Company Number: GBXR2007US01632

PATIENT
  Age: 38 Year
  Sex: Female

DRUGS (4)
  1. FLUOXETINE [Suspect]
     Dosage: 10 MG, QD, ORAL
     Route: 048
     Dates: start: 20070913
  2. CYCLOBENZAPRINE HCL [Suspect]
     Dosage: 10  MG
     Dates: start: 20070907, end: 20070923
  3. MICARDIS [Concomitant]
  4. FAMOTIDINE (FAMOTIDNE) [Concomitant]

REACTIONS (8)
  - BLOOD PRESSURE INCREASED [None]
  - CHEST PAIN [None]
  - COORDINATION ABNORMAL [None]
  - DIZZINESS [None]
  - DRUG INTERACTION [None]
  - HEART RATE INCREASED [None]
  - HYPERHIDROSIS [None]
  - NAUSEA [None]
